FAERS Safety Report 25503034 (Version 6)
Quarter: 2025Q4

REPORT INFORMATION
  Report Type: Report from Study
  Country: US (occurrence: US)
  Receive Date: 20250702
  Receipt Date: 20251106
  Transmission Date: 20260118
  Serious: Yes (Other)
  Sender: DECIPHERA PHARMACEUTICALS
  Company Number: US-DECIPHERA PHARMACEUTICALS LLC-2025US000744

PATIENT
  Age: 68 Year
  Sex: Female
  Weight: 95.782 kg

DRUGS (1)
  1. QINLOCK [Suspect]
     Active Substance: RIPRETINIB
     Indication: Gastrointestinal stromal tumour
     Dosage: 150 MILLIGRAM, QD
     Dates: start: 20250501

REACTIONS (18)
  - Malignant neoplasm progression [Unknown]
  - Lung abscess [Recovered/Resolved]
  - Pain [Unknown]
  - Weight increased [Unknown]
  - Hernia [Unknown]
  - Epigastric discomfort [Unknown]
  - Flatulence [Unknown]
  - Blood pressure increased [Unknown]
  - Pain in extremity [Unknown]
  - Dry skin [Unknown]
  - Pruritus [Unknown]
  - Diarrhoea [Not Recovered/Not Resolved]
  - Nausea [Unknown]
  - Alopecia [Unknown]
  - Fatigue [Unknown]
  - Muscle spasms [Unknown]
  - Abdominal pain [Unknown]
  - Product dose omission in error [Unknown]

NARRATIVE: CASE EVENT DATE: 20250101
